FAERS Safety Report 7350758-7 (Version None)
Quarter: 2011Q1

REPORT INFORMATION
  Report Type: 
  Country: None (occurrence: None)
  Receive Date: 20110222
  Receipt Date: 20101116
  Transmission Date: 20110831
  Serious: No
  Sender: FDA-Public Use
  Company Number: 020708

PATIENT
  Sex: Female
  Weight: 57.6 kg

DRUGS (5)
  1. PRIMIDONE [Concomitant]
  2. LACOSAMIDE [Suspect]
     Indication: EPILEPSY
     Dosage: (100 MG BID ORAL), (50 MG BID)
     Route: 048
     Dates: start: 20100801, end: 20100101
  3. VITAMIN B6 [Concomitant]
  4. DIAMOX /00016901/ [Concomitant]
  5. FOLIC ACID [Concomitant]

REACTIONS (3)
  - DEPRESSION [None]
  - CONVULSION [None]
  - NEPHROLITHIASIS [None]
